FAERS Safety Report 9880010 (Version 2)
Quarter: 2014Q2

REPORT INFORMATION
  Report Type: Spontaneous
  Country: US (occurrence: US)
  Receive Date: 20140207
  Receipt Date: 20140415
  Transmission Date: 20141212
  Serious: No
  Sender: FDA-Public Use
  Company Number: US-009507513-1401USA014510

PATIENT
  Sex: Female

DRUGS (4)
  1. NEXPLANON [Suspect]
     Indication: CONTRACEPTION
     Dosage: 1 ^IMPLANT^, UNK
     Route: 059
     Dates: start: 20130312, end: 20130408
  2. FLAGYL [Concomitant]
     Indication: VAGINITIS BACTERIAL
     Dosage: 500 MG, BID
     Route: 048
     Dates: start: 20130312, end: 20130319
  3. FLEXERIL [Concomitant]
     Indication: MUSCLE SPASMS
     Dosage: 10 MG, TID, PRN
     Route: 048
     Dates: start: 20130302
  4. PNV [Concomitant]
     Dosage: UNK, QD
     Route: 048
     Dates: start: 20130408

REACTIONS (1)
  - Maternal exposure during pregnancy [Recovered/Resolved]
